FAERS Safety Report 21157272 (Version 8)
Quarter: 2022Q4

REPORT INFORMATION
  Report Type: Spontaneous
  Country: US (occurrence: US)
  Receive Date: 20220801
  Receipt Date: 20221216
  Transmission Date: 20230112
  Serious: No
  Sender: FDA-Public Use
  Company Number: US-PFIZER INC-2018245368

PATIENT
  Age: 69 Year
  Sex: Female
  Weight: 79 kg

DRUGS (9)
  1. TIKOSYN [Suspect]
     Active Substance: DOFETILIDE
     Indication: Atrial fibrillation
     Dosage: 125 UG, 2X/DAY
     Route: 048
  2. TIKOSYN [Suspect]
     Active Substance: DOFETILIDE
     Dosage: TAKE THREE CAPSULES TWICE DAILY/EVERY 12 HOURS
     Route: 048
  3. TIKOSYN [Suspect]
     Active Substance: DOFETILIDE
     Dosage: 375 IN THE MORNING, 375 IN THE AFTERNOON
  4. TIKOSYN [Suspect]
     Active Substance: DOFETILIDE
     Dosage: ONE 125 UG, THE OTHER 250 UG, TAKEN TOGETHER TO MAKE 375 UG
     Route: 048
  5. TIKOSYN [Suspect]
     Active Substance: DOFETILIDE
     Dosage: 1 CAPSULE BY MOUTH 2 TIMES DAILY FOR CARDIOVERSION OF ATRIAL FIBRILLATION
     Route: 048
     Dates: start: 20220415
  6. TIKOSYN [Suspect]
     Active Substance: DOFETILIDE
     Dosage: TAKE 1 CAPSULE BY MOUTH 2 TIMES DAILY FOR CARDIOVERSION OF ATRIAL FIBRILLATION
     Route: 048
     Dates: start: 20220415
  7. TIKOSYN [Suspect]
     Active Substance: DOFETILIDE
     Dosage: 0.350 MG, 2X/DAY
  8. TIKOSYN [Suspect]
     Active Substance: DOFETILIDE
     Dosage: .125 STRENGTH AND THE .250 STRENGTH, 2X/DAY
  9. TIKOSYN [Suspect]
     Active Substance: DOFETILIDE
     Dosage: 125 IU, 2X/DAY
     Route: 048

REACTIONS (5)
  - Anxiety [Unknown]
  - Emotional disorder [Unknown]
  - Product dose omission issue [Unknown]
  - Wrong strength [Unknown]
  - Off label use [Unknown]
